FAERS Safety Report 20474083 (Version 2)
Quarter: 2022Q1

REPORT INFORMATION
  Report Type: Other
  Country: US (occurrence: US)
  Receive Date: 20220215
  Receipt Date: 20220321
  Transmission Date: 20220423
  Serious: Yes (Hospitalization)
  Sender: FDA-Public Use
  Company Number: US-INTERCEPT-PM2022000262

PATIENT
  Age: 52 Year
  Sex: Female

DRUGS (2)
  1. OCALIVA [Suspect]
     Active Substance: OBETICHOLIC ACID
     Indication: Primary biliary cholangitis
     Dosage: 5 MILLIGRAM, QD
     Route: 048
     Dates: start: 202103, end: 202202
  2. OCALIVA [Suspect]
     Active Substance: OBETICHOLIC ACID
     Indication: Product use in unapproved indication
     Dosage: 10 MILLIGRAM, QD
     Route: 048
     Dates: start: 2022

REACTIONS (3)
  - Spinal operation [Unknown]
  - Dehydration [Unknown]
  - Chromaturia [Unknown]

NARRATIVE: CASE EVENT DATE: 20220101
